FAERS Safety Report 7606146-9 (Version None)
Quarter: 2011Q3

REPORT INFORMATION
  Report Type: 
  Country: None (occurrence: None)
  Receive Date: 20110713
  Receipt Date: 20110707
  Transmission Date: 20111222
  Serious: Yes (Hospitalization)
  Sender: FDA-Public Use
  Company Number: CA-ABBOTT-11P-028-0837269-00

PATIENT
  Sex: Female

DRUGS (4)
  1. SPIRONOLACTONE [Concomitant]
     Indication: PRODUCT USED FOR UNKNOWN INDICATION
  2. PERINDOPRIL ERBUMINE [Suspect]
     Indication: ARRHYTHMIA PROPHYLAXIS
     Route: 048
  3. PLACEBO [Suspect]
     Indication: ARRHYTHMIA PROPHYLAXIS
     Route: 048
  4. HYDROCHLOROTHIAZIDE [Concomitant]
     Indication: PRODUCT USED FOR UNKNOWN INDICATION

REACTIONS (1)
  - HYPOKALAEMIA [None]
